FAERS Safety Report 6215136-2 (Version None)
Quarter: 2009Q2

REPORT INFORMATION
  Report Type: 
  Country: None (occurrence: None)
  Receive Date: 20090604
  Receipt Date: 20090316
  Transmission Date: 20091009
  Serious: No
  Sender: FDA-Public Use
  Company Number: US-ASTRAZENECA-2009UW06791

PATIENT
  Age: 51 Year
  Sex: Female
  Weight: 68 kg

DRUGS (6)
  1. PRILOSEC [Suspect]
     Indication: DYSPEPSIA
     Route: 048
     Dates: start: 20050101
  2. ASPIRIN [Concomitant]
  3. MULTI-VITAMIN [Concomitant]
  4. XANAX [Concomitant]
  5. BUSPAR [Concomitant]
  6. LORATADINE [Concomitant]

REACTIONS (3)
  - DRUG INEFFECTIVE [None]
  - GASTRIC PH DECREASED [None]
  - HIATUS HERNIA [None]
